FAERS Safety Report 18550036 (Version 1)
Quarter: 2020Q4

REPORT INFORMATION
  Report Type: Spontaneous
  Country: HN (occurrence: HN)
  Receive Date: 20201126
  Receipt Date: 20201126
  Transmission Date: 20210114
  Serious: Yes (Death)
  Sender: FDA-Public Use
  Company Number: NVSC2020HN314504

PATIENT
  Age: 87 Year
  Sex: Female

DRUGS (1)
  1. GLIVEC [Suspect]
     Active Substance: IMATINIB MESYLATE
     Indication: CHRONIC MYELOID LEUKAEMIA
     Dosage: UNK, 3X100MG
     Route: 065
     Dates: end: 201910

REACTIONS (2)
  - Rash pruritic [Unknown]
  - Pneumonia [Fatal]

NARRATIVE: CASE EVENT DATE: 201910
